FAERS Safety Report 25178758 (Version 1)
Quarter: 2025Q2

REPORT INFORMATION
  Report Type: Spontaneous
  Country: US (occurrence: None)
  Receive Date: 20250408
  Receipt Date: 20250408
  Transmission Date: 20250717
  Serious: Yes (Life-Threatening, Disabling)
  Sender: FDA-CTU
  Company Number: None

PATIENT
  Age: 68 Year
  Sex: Male
  Weight: 114.75 kg

DRUGS (21)
  1. EDARBI [Suspect]
     Active Substance: AZILSARTAN KAMEDOXOMIL
     Indication: Hypertension
     Dosage: OTHER QUANTITY : 1 CAPSULE(S);?FREQUENCY : AT BEDTIME;?
     Route: 048
     Dates: start: 20150101, end: 20250311
  2. AMPHETAMINE [Concomitant]
     Active Substance: AMPHETAMINE
  3. DEXTROAMPHETAMINE SACCHARATE, AMPHETAMINE ASPARTATE, DEXTROAMPHETAMINE [Concomitant]
     Active Substance: AMPHETAMINE ASPARTATE\AMPHETAMINE SULFATE\DEXTROAMPHETAMINE SACCHARATE\DEXTROAMPHETAMINE SULFATE
  4. MOUNJARO [Concomitant]
     Active Substance: TIRZEPATIDE
  5. NAPROXEN [Concomitant]
     Active Substance: NAPROXEN
  6. AZILSARTAN KAMEDOXOMIL [Concomitant]
     Active Substance: AZILSARTAN KAMEDOXOMIL
  7. DOXAZOSIN [Concomitant]
     Active Substance: DOXAZOSIN MESYLATE
  8. DILTIAZEM [Concomitant]
     Active Substance: DILTIAZEM
  9. OMEPRAZOLE [Concomitant]
     Active Substance: OMEPRAZOLE
  10. METOPROLOL SUCCINATE [Concomitant]
     Active Substance: METOPROLOL SUCCINATE
  11. DULOXETINE [Concomitant]
     Active Substance: DULOXETINE
  12. SIMVASTATIN [Concomitant]
     Active Substance: SIMVASTATIN
  13. TRELEGY ELLIPTA [Concomitant]
     Active Substance: FLUTICASONE FUROATE\UMECLIDINIUM BROMIDE\VILANTEROL TRIFENATATE
  14. AZELASTINE [Concomitant]
     Active Substance: AZELASTINE
  15. CETIRIZINE [Concomitant]
     Active Substance: CETIRIZINE HYDROCHLORIDE
  16. COENZYME Q10 [Concomitant]
     Active Substance: DIETARY SUPPLEMENT\UBIDECARENONE
  17. VITAMIN D3 [Concomitant]
     Active Substance: CHOLECALCIFEROL
  18. ASPIRIN [Concomitant]
     Active Substance: ASPIRIN
  19. VITAMINS [Concomitant]
     Active Substance: VITAMINS
  20. FLUTICASONE [Concomitant]
     Active Substance: FLUTICASONE
  21. Propionate [Concomitant]

REACTIONS (9)
  - Diarrhoea [None]
  - Dyspnoea [None]
  - Fatigue [None]
  - Insomnia [None]
  - Liver function test abnormal [None]
  - Blood calcium increased [None]
  - Dyspnoea [None]
  - Coronary artery stenosis [None]
  - Hypervolaemia [None]

NARRATIVE: CASE EVENT DATE: 20250101
